FAERS Safety Report 7553632-6 (Version None)
Quarter: 2011Q2

REPORT INFORMATION
  Report Type: 
  Country: None (occurrence: None)
  Receive Date: 20110609
  Receipt Date: 20110526
  Transmission Date: 20111010
  Serious: Yes (Hospitalization)
  Sender: FDA-Public Use
  Company Number: 1000021444

PATIENT
  Age: 73 Year
  Sex: Female

DRUGS (5)
  1. SPIRIVA (TIOTROPIUM BROMIDE) (18 MICROGRAM) (TIOTROPIUM BROMIDE) [Concomitant]
  2. ROFLUMILAST (ROFLUMILAST) (TABLETS) [Suspect]
     Indication: CHRONIC OBSTRUCTIVE PULMONARY DISEASE
     Dates: start: 20110201
  3. HYDROCHLOROTHIAZIDE (HYDROCHLOROTHIAZIDE) (25 MILLIGRAM) (HYDROCHLOROT [Concomitant]
  4. LISINOPRIL (LISINOPRIL) (5 MILLIGRAM) (LISINOPRIL) [Concomitant]
  5. NUX VOMICA (NUX VOMICA HOMACCORD) [Suspect]
     Dates: start: 20110517

REACTIONS (5)
  - DYSPNOEA [None]
  - SWOLLEN TONGUE [None]
  - GENERAL PHYSICAL HEALTH DETERIORATION [None]
  - OROPHARYNGEAL SWELLING [None]
  - HYPERSENSITIVITY [None]
